FAERS Safety Report 7742048-5 (Version None)
Quarter: 2011Q3

REPORT INFORMATION
  Report Type: 
  Country: None (occurrence: None)
  Receive Date: 20110912
  Receipt Date: 20100405
  Transmission Date: 20111222
  Serious: No
  Sender: FDA-Public Use
  Company Number: US-BAYER-201019792NA

PATIENT
  Age: 26 Year
  Sex: Female

DRUGS (1)
  1. MIRENA [Suspect]
     Indication: CONTRACEPTION
     Dosage: UNK
     Dates: start: 20100216, end: 20100218

REACTIONS (3)
  - ABDOMINAL PAIN LOWER [None]
  - ABDOMINAL PAIN [None]
  - BACK PAIN [None]
